FAERS Safety Report 7372573-0 (Version None)
Quarter: 2011Q1

REPORT INFORMATION
  Report Type: 
  Country: None (occurrence: None)
  Receive Date: 20110324
  Receipt Date: 20110315
  Transmission Date: 20110831
  Serious: Yes (Disabling)
  Sender: FDA-Public Use
  Company Number: US-MERCK-0805USA02814

PATIENT
  Age: 50 Year
  Sex: Female
  Weight: 68 kg

DRUGS (6)
  1. FLONASE [Concomitant]
     Indication: ASTHMA
     Route: 065
     Dates: start: 20020101
  2. NORVASC [Concomitant]
     Indication: HYPERTENSION
     Route: 065
     Dates: start: 20020101, end: 20060101
  3. FOSAMAX [Suspect]
     Indication: PROPHYLAXIS
     Route: 048
     Dates: start: 20021201
  4. FOSAMAX [Suspect]
     Route: 048
     Dates: start: 20030201, end: 20070501
  5. FOSAMAX [Suspect]
     Route: 048
     Dates: start: 20020101
  6. ZITHROMAX [Concomitant]
     Indication: UPPER RESPIRATORY TRACT INFECTION
     Route: 065
     Dates: start: 20020101, end: 20060101

REACTIONS (24)
  - PERIODONTAL DISEASE [None]
  - CARDIAC DISORDER [None]
  - PAIN [None]
  - RENAL CYST [None]
  - VITAMIN B12 DEFICIENCY [None]
  - ARTHRALGIA [None]
  - HYPERSENSITIVITY [None]
  - MALAISE [None]
  - DENTAL CARIES [None]
  - LOOSE TOOTH [None]
  - JOINT SWELLING [None]
  - ORAL INFECTION [None]
  - MYALGIA [None]
  - OSTEONECROSIS OF JAW [None]
  - URINARY TRACT DISORDER [None]
  - BONE DENSITY DECREASED [None]
  - JAW DISORDER [None]
  - OSTEOMYELITIS [None]
  - OROPHARYNGEAL PAIN [None]
  - INFECTION [None]
  - BONE DISORDER [None]
  - TOOTH DISORDER [None]
  - GINGIVAL DISORDER [None]
  - BONE PAIN [None]
